FAERS Safety Report 19479810 (Version 1)
Quarter: 2021Q2

REPORT INFORMATION
  Report Type: Report from Study
  Country: DE (occurrence: DE)
  Receive Date: 20210630
  Receipt Date: 20210630
  Transmission Date: 20210717
  Serious: Yes (Hospitalization)
  Sender: FDA-Public Use
  Company Number: DE-PFIZER INC-2021718705

PATIENT
  Age: 70 Year
  Sex: Female

DRUGS (5)
  1. METHOTREXATE SODIUM. [Suspect]
     Active Substance: METHOTREXATE SODIUM
     Dosage: 15 MG, WEEKLY
  2. KEVZARA [Suspect]
     Active Substance: SARILUMAB
     Dosage: 200 MG, CYCLIC(EVERY 14 DAYS)
     Dates: start: 20201214
  3. KEVZARA [Suspect]
     Active Substance: SARILUMAB
     Dosage: 200 MG, CYCLIC(EVERY 14 DAYS)
     Dates: end: 20200730
  4. NO SUBJECT DRUG [Suspect]
     Active Substance: UNSPECIFIED INGREDIENT
     Dosage: NO DOSE GIVEN
  5. XELJANZ [Suspect]
     Active Substance: TOFACITINIB CITRATE
     Dosage: UNK

REACTIONS (1)
  - Post herpetic neuralgia [Unknown]

NARRATIVE: CASE EVENT DATE: 20201125
